FAERS Safety Report 4358351-5 (Version None)
Quarter: 2004Q2

REPORT INFORMATION
  Report Type: 
  Country: None (occurrence: None)
  Receive Date: 20040514
  Receipt Date: 20040504
  Transmission Date: 20050107
  Serious: Yes (Hospitalization)
  Sender: FDA-Public Use
  Company Number: PHFR2004GB01995

PATIENT
  Age: 41 Year
  Sex: Male
  Weight: 82 kg

DRUGS (5)
  1. TEGRETOL [Suspect]
     Indication: EPILEPSY
     Dosage: 400MG/DAY
     Route: 048
     Dates: start: 20040316
  2. LANSOPRAZOLE [Concomitant]
     Indication: GASTROOESOPHAGEAL REFLUX DISEASE
     Dosage: 15MG/DAY
     Route: 048
     Dates: start: 20030401
  3. FLUOXETINE [Concomitant]
     Indication: DEPRESSION
     Dosage: 20MG/DAY
     Route: 048
  4. CO-TENIDONE [Concomitant]
     Indication: HYPERTENSION
     Dosage: (50/2.5) 1 DAILY
     Route: 048
  5. PHENYTOIN [Concomitant]
     Indication: EPILEPSY
     Dosage: 200MG/DAY
     Route: 048
     Dates: start: 20030401

REACTIONS (6)
  - ARTHRALGIA [None]
  - HYPONATRAEMIA [None]
  - INFLUENZA LIKE ILLNESS [None]
  - NEUTROPENIA [None]
  - NEUTROPENIC SEPSIS [None]
  - RASH MACULO-PAPULAR [None]
